FAERS Safety Report 8541098 (Version 4)
Quarter: 2012Q4

REPORT INFORMATION
  Report Type: 
  Country: JP (occurrence: JP)
  Receive Date: 20120502
  Receipt Date: 20121126
  Transmission Date: 20130627
  Serious: Yes (Death, Life-Threatening, Hospitalization)
  Sender: FDA-Public Use
  Company Number: JP-B.I. PHARMACEUTICALS,INC./RIDGEFIELD-2012-BP-09558NB

PATIENT
  Age: 78 Year
  Sex: Female
  Weight: 44 kg

DRUGS (15)
  1. PRAZAXA [Suspect]
     Indication: ATRIAL FIBRILLATION
     Dosage: 220 mg
     Route: 048
     Dates: start: 201202, end: 20120417
  2. RHEUMATREX [Suspect]
     Indication: RHEUMATOID ARTHRITIS
     Dosage: 4 mg
     Route: 048
     Dates: start: 20100726, end: 20120412
  3. PROGRAF [Suspect]
     Indication: RHEUMATOID ARTHRITIS
     Dosage: 1 mg
     Route: 048
     Dates: start: 20120322, end: 20120412
  4. ALDACTONE [Concomitant]
     Indication: HYPERTENSION
     Dosage: 25 mg
     Route: 048
     Dates: start: 20100811, end: 20120412
  5. CRESTOR [Concomitant]
     Indication: HYPERLIPIDAEMIA
     Dosage: 2.5 mg
     Route: 048
     Dates: start: 20100623, end: 20120412
  6. ZYLORIC [Concomitant]
     Indication: HYPERURICAEMIA
     Dosage: 50 mg
     Route: 048
     Dates: start: 20110526, end: 20120412
  7. TAKEPRON [Concomitant]
     Indication: PROPHYLAXIS AGAINST GASTROINTESTINAL ULCER
     Dosage: 15 mg
     Route: 048
     Dates: start: 20100623, end: 20120412
  8. DIOVAN [Concomitant]
     Indication: HYPERTENSION
     Dosage: 80 mg
     Route: 048
     Dates: start: 201202
  9. BAYASPIRIN [Concomitant]
     Indication: STENT PLACEMENT
     Dosage: 100 mg
     Route: 048
     Dates: start: 201202
  10. PLAVIX [Concomitant]
     Indication: STENT PLACEMENT
     Dosage: 75 mg
     Route: 048
     Dates: start: 201202
  11. MAINTATE [Concomitant]
     Indication: ATRIAL FIBRILLATION
     Dosage: 5 mg
     Route: 048
     Dates: start: 20100811, end: 20120412
  12. MEDROL [Concomitant]
     Indication: RHEUMATOID ARTHRITIS
     Dosage: 5 mg
     Route: 048
     Dates: start: 20100614, end: 20120412
  13. FUROSEMIDE [Concomitant]
     Indication: ATRIAL FIBRILLATION
     Dosage: 10 mg
     Route: 048
     Dates: start: 201005, end: 20120412
  14. FUROSEMIDE [Concomitant]
     Indication: CARDIAC FAILURE
  15. FOLIAMIN [Concomitant]
     Indication: FOLATE DEFICIENCY
     Dosage: 5 mg
     Route: 048
     Dates: start: 20120119, end: 20120412

REACTIONS (6)
  - Subdural haematoma [Fatal]
  - Fall [Unknown]
  - Interstitial lung disease [Recovered/Resolved]
  - Abdominal pain lower [Not Recovered/Not Resolved]
  - Diarrhoea [Recovered/Resolved]
  - Respiratory tract haemorrhage [Recovered/Resolved]
